FAERS Safety Report 21203060 (Version 1)
Quarter: 2022Q3

REPORT INFORMATION
  Report Type: Spontaneous
  Country: CN (occurrence: CN)
  Receive Date: 20220811
  Receipt Date: 20220811
  Transmission Date: 20221026
  Serious: Yes (Other)
  Sender: FDA-Public Use
  Company Number: CN-JNJFOC-20220808598

PATIENT

DRUGS (2)
  1. TRACLEER [Suspect]
     Active Substance: BOSENTAN
     Indication: Interstitial lung disease
     Route: 048
  2. CYCLOPHOSPHAMIDE [Suspect]
     Active Substance: CYCLOPHOSPHAMIDE
     Indication: Interstitial lung disease
     Dosage: 200 MG/PIECE) 15 MG/KG + 250 ML OF SODIUM CHLORIDE INJECTION
     Route: 041

REACTIONS (7)
  - Myelosuppression [Unknown]
  - Dizziness [Unknown]
  - Hepatic function abnormal [Unknown]
  - Gastrointestinal disorder [Unknown]
  - Drug ineffective [Unknown]
  - Headache [Unknown]
  - Product use in unapproved indication [Unknown]
